FAERS Safety Report 10785302 (Version 1)
Quarter: 2015Q1

REPORT INFORMATION
  Report Type: Spontaneous
  Country: US (occurrence: None)
  Receive Date: 20150210
  Receipt Date: 20150210
  Transmission Date: 20150721
  Serious: No
  Sender: FDA-Public Use
  Company Number: None

PATIENT

DRUGS (2)
  1. SULFONYLUREA [Suspect]
     Active Substance: UNSPECIFIED INGREDIENT
  2. SULFONAMIDE [Suspect]
     Active Substance: UNSPECIFIED INGREDIENT

REACTIONS (1)
  - Circumstance or information capable of leading to medication error [None]
